FAERS Safety Report 4696739-3 (Version None)
Quarter: 2005Q2

REPORT INFORMATION
  Report Type: 
  Country: None (occurrence: None)
  Receive Date: 20050126
  Receipt Date: 20050126
  Transmission Date: 20051028
  Serious: No
  Sender: FDA-Public Use
  Company Number: None

PATIENT
  Sex: Female

DRUGS (1)
  1. LORTAB [Suspect]
     Indication: LUNG NEOPLASM MALIGNANT
     Dosage: 1-2 PO Q 4 HOURS PRN  OVER 1 YEAR
     Route: 048

REACTIONS (2)
  - DRUG EFFECT DECREASED [None]
  - NO ADVERSE EFFECT [None]
